FAERS Safety Report 4981433-1 (Version None)
Quarter: 2006Q2

REPORT INFORMATION
  Report Type: 
  Country: None (occurrence: None)
  Receive Date: 20060419
  Receipt Date: 20060410
  Transmission Date: 20061013
  Serious: Yes (Other)
  Sender: FDA-Public Use
  Company Number: US-2005-021344

PATIENT
  Age: 54 Year
  Sex: Female
  Weight: 86.2 kg

DRUGS (16)
  1. CLIMARA [Suspect]
     Indication: MENOPAUSE
     Dosage: 0.5 MG/D, CONT, TRANSDERMAL
     Route: 062
     Dates: start: 19950101
  2. PREMARIN [Suspect]
     Indication: MENOPAUSE
     Dosage: SEE IMAGE
     Route: 065
     Dates: start: 19961021, end: 19961216
  3. PREMARIN [Suspect]
     Indication: MENOPAUSE
     Dosage: SEE IMAGE
     Route: 065
     Dates: start: 19980409, end: 19990611
  4. PREMARIN [Suspect]
     Indication: MENOPAUSE
     Dosage: SEE IMAGE
     Route: 065
     Dates: start: 19900720
  5. PREMARIN [Suspect]
     Indication: MENOPAUSE
     Dosage: SEE IMAGE
     Route: 065
     Dates: start: 19990101
  6. PREMARIN [Suspect]
     Indication: MENOPAUSE
     Dosage: SEE IMAGE
     Route: 065
     Dates: start: 20000101
  7. PROVERA [Suspect]
     Indication: MENOPAUSE
     Dosage: 2.5 MG,UNK
     Route: 065
     Dates: start: 19900702, end: 19990102
  8. ESTRACE [Suspect]
     Indication: MENOPAUSE
     Dosage: 1 MG, UNK
     Route: 065
     Dates: start: 19921218, end: 19960812
  9. ESTRADERM [Suspect]
     Indication: MENOPAUSE
     Dosage: 0.05 MG, UNK
     Route: 065
     Dates: start: 19930101
  10. OGEN [Suspect]
     Indication: MENOPAUSE
     Dosage: 0.625 MG, UNK
     Route: 065
     Dates: start: 19950623
  11. PREMPRO [Suspect]
     Indication: MENOPAUSE
     Dosage: 0.625/5MG, UNK
     Route: 065
     Dates: start: 19960703, end: 20010101
  12. PREMPHASE (PREMARIN;CYCRIN 14/14) [Suspect]
     Indication: MENOPAUSE
     Dosage: 0.625/5MG, UNK
     Route: 065
     Dates: start: 19970101
  13. CYCRIN [Suspect]
     Indication: MENOPAUSE
     Dosage: 2.5 MG, UNK
     Route: 065
     Dates: start: 19960101
  14. CYCRIN [Suspect]
     Indication: MENOPAUSE
     Dosage: 2.5 MG, UNK
     Route: 065
     Dates: start: 19990101
  15. PROMETRIUM [Suspect]
     Indication: MENOPAUSE
     Dosage: 100 MG, UNK
     Route: 065
     Dates: start: 19990101
  16. SYNTHROID [Concomitant]

REACTIONS (12)
  - BLOOD FOLLICLE STIMULATING HORMONE DECREASED [None]
  - BREAST CANCER FEMALE [None]
  - BREAST CYST [None]
  - BREAST MASS [None]
  - CARPAL TUNNEL DECOMPRESSION [None]
  - CONDITION AGGRAVATED [None]
  - DEPRESSION [None]
  - DYSMENORRHOEA [None]
  - ENDOMETRIAL HYPERPLASIA [None]
  - HOT FLUSH [None]
  - INSOMNIA [None]
  - NEOPLASM MALIGNANT [None]
